FAERS Safety Report 7165769-4 (Version None)
Quarter: 2010Q4

REPORT INFORMATION
  Report Type: 
  Country: None (occurrence: None)
  Receive Date: 20101215
  Receipt Date: 20091221
  Transmission Date: 20110411
  Serious: No
  Sender: FDA-Public Use
  Company Number: US-AMGEN-KDL381719

PATIENT

DRUGS (4)
  1. ENBREL [Suspect]
     Indication: RHEUMATOID ARTHRITIS
     Dosage: 50 MG, QWK
     Route: 058
     Dates: start: 20060420
  2. METHOTREXATE [Concomitant]
     Dosage: 22.5 MG, QWK
     Route: 048
  3. FOLIC ACID [Concomitant]
  4. DICLOFENAC SODIUM [Concomitant]
     Dosage: UNK UNK, UNK
     Route: 061

REACTIONS (2)
  - FEELING ABNORMAL [None]
  - SINUSITIS [None]
